FAERS Safety Report 5937343-6 (Version None)
Quarter: 2008Q4

REPORT INFORMATION
  Report Type: 
  Country: None (occurrence: None)
  Receive Date: 20081031
  Receipt Date: 20081028
  Transmission Date: 20090506
  Serious: Yes (Other)
  Sender: FDA-Public Use
  Company Number: US-GILEAD-2008-0018130

PATIENT
  Sex: Female
  Weight: 103.51 kg

DRUGS (18)
  1. LETAIRIS [Suspect]
     Indication: PULMONARY HYPERTENSION
     Route: 048
     Dates: start: 20080128
  2. NORVASC [Concomitant]
     Indication: HYPERTENSION
  3. LABETALOL HCL [Concomitant]
     Indication: HYPERTENSION
  4. PLAVIX [Concomitant]
     Indication: PROPHYLAXIS
  5. PREDNISONE [Concomitant]
     Indication: SYSTEMIC LUPUS ERYTHEMATOSUS
  6. ZANTAC [Concomitant]
  7. HYDROCHLOROTHIAZIDE [Concomitant]
     Indication: HYPERTENSION
  8. CLONIDINE [Concomitant]
  9. LISINOPRIL [Concomitant]
  10. KLONOPIN [Concomitant]
  11. PLAQUENIL [Concomitant]
  12. HYDRALAZINE HYDROCHLORIDE [Concomitant]
  13. IMURAN [Concomitant]
  14. VITAMIN D [Concomitant]
     Indication: SYSTEMIC LUPUS ERYTHEMATOSUS
  15. VITAMIN D [Concomitant]
     Indication: OSTEOPOROSIS PROPHYLAXIS
  16. FOLIC ACID [Concomitant]
  17. SENNA [Concomitant]
  18. IRON [Concomitant]

REACTIONS (1)
  - PREGNANCY [None]
